FAERS Safety Report 7011584-1 (Version None)
Quarter: 2010Q3

REPORT INFORMATION
  Report Type: 
  Country: None (occurrence: None)
  Receive Date: 20100923
  Receipt Date: 20090303
  Transmission Date: 20110219
  Serious: No
  Sender: FDA-Public Use
  Company Number: US-WYE-H08472809

PATIENT
  Sex: Female
  Weight: 85.35 kg

DRUGS (5)
  1. PREMARIN [Suspect]
     Indication: VULVOVAGINAL PRURITUS
     Route: 067
     Dates: start: 20090218
  2. GLUCOPHAGE [Concomitant]
  3. LISINOPRIL [Concomitant]
  4. VESICARE [Concomitant]
  5. PROTONIX [Concomitant]

REACTIONS (5)
  - BLOOD GLUCOSE INCREASED [None]
  - CONDITION AGGRAVATED [None]
  - DYSPAREUNIA [None]
  - VULVOVAGINAL BURNING SENSATION [None]
  - VULVOVAGINAL PAIN [None]
